FAERS Safety Report 20959691 (Version 3)
Quarter: 2022Q3

REPORT INFORMATION
  Report Type: Spontaneous
  Country: JP (occurrence: JP)
  Receive Date: 20220614
  Receipt Date: 20220802
  Transmission Date: 20221026
  Serious: No
  Sender: FDA-Public Use
  Company Number: JP-AMGEN-JPNSP2022081223

PATIENT
  Age: 84 Year
  Sex: Female

DRUGS (4)
  1. EVENITY [Suspect]
     Active Substance: ROMOSOZUMAB-AQQG
     Indication: Osteoporosis
     Dosage: 210 MILLIGRAM, QMO
     Route: 058
     Dates: start: 20220425, end: 2022
  2. LOXOPROFEN SODIUM [Concomitant]
     Active Substance: LOXOPROFEN SODIUM
     Dosage: 60 MILLIGRAM, TID
     Route: 065
     Dates: start: 20220517, end: 20220629
  3. REBAMIPIDE [Concomitant]
     Active Substance: REBAMIPIDE
     Dosage: 100 MILLIGRAM, TID
     Route: 065
     Dates: start: 20220517, end: 20220629
  4. KETOPROFEN [Concomitant]
     Active Substance: KETOPROFEN
     Dosage: 20 MILLIGRAM, QD
     Route: 065
     Dates: start: 20220517, end: 20220629

REACTIONS (3)
  - Gait inability [Unknown]
  - Constipation [Unknown]
  - Arthralgia [Not Recovered/Not Resolved]

NARRATIVE: CASE EVENT DATE: 20220427
